FAERS Safety Report 4633240-7 (Version None)
Quarter: 2005Q2

REPORT INFORMATION
  Report Type: 
  Country: None (occurrence: None)
  Receive Date: 20050412
  Receipt Date: 20050412
  Transmission Date: 20051028
  Serious: Yes (Death)
  Sender: FDA-Public Use
  Company Number: None

PATIENT
  Sex: Female

DRUGS (8)
  1. VINCRISTINE [Suspect]
  2. METHOTREXATE [Suspect]
     Dosage: INTRATHECAL
     Route: 037
  3. PREDNISONE [Concomitant]
  4. VINCRISTINE [Concomitant]
  5. METHOTREXATE [Concomitant]
  6. LASP [Concomitant]
  7. ALLOPURINOL [Concomitant]
  8. COZYMES [Concomitant]

REACTIONS (3)
  - HEPATIC FAILURE [None]
  - MULTI-ORGAN FAILURE [None]
  - RENAL FAILURE [None]
